FAERS Safety Report 5921041-9 (Version None)
Quarter: 2008Q4

REPORT INFORMATION
  Report Type: 
  Country: None (occurrence: None)
  Receive Date: 20081016
  Receipt Date: 20081008
  Transmission Date: 20090506
  Serious: Yes (Disabling)
  Sender: FDA-Public Use
  Company Number: GB-PFIZER INC-2008078370

PATIENT
  Sex: Male
  Weight: 80 kg

DRUGS (2)
  1. CAMPTOSAR [Suspect]
     Indication: COLON CANCER METASTATIC
     Route: 042
     Dates: start: 20080718, end: 20080919
  2. DEXAMETHASONE [Concomitant]
     Indication: MALAISE
     Dosage: TEXT:2 TO 4 MG ONCE DAILY
     Route: 048
     Dates: start: 20080701

REACTIONS (1)
  - NEUROPATHY PERIPHERAL [None]
